FAERS Safety Report 9203608 (Version 1)
Quarter: 2013Q1

REPORT INFORMATION
  Report Type: Spontaneous
  Country: JP (occurrence: None)
  Receive Date: 20130329
  Receipt Date: 20130329
  Transmission Date: 20140127
  Serious: Yes (Hospitalization, Other)
  Sender: FDA-Public Use
  Company Number: IPC201303-000098

PATIENT
  Sex: Female

DRUGS (5)
  1. ALLOPURINOL [Suspect]
     Indication: HYPERURICAEMIA
     Dosage: FROM DAY 4 OF ADMINISTRATION)
  2. RIBAVIRIN [Suspect]
     Indication: CHRONIC HEPATITIS C
  3. PEGINTERFERON ALFA-2B [Suspect]
     Indication: CHRONIC HEPATITIS C
     Dosage: 1.4 UG/KG/WEEK
  4. PREDNISOLONE [Suspect]
     Dosage: 20 MG
  5. TELAPREVIR (TELAPREVIR) [Concomitant]

REACTIONS (10)
  - Toxic epidermal necrolysis [None]
  - Pharyngitis bacterial [None]
  - Cytomegalovirus test positive [None]
  - Blood beta-D-glucan increased [None]
  - Anaemia [None]
  - Constipation [None]
  - Haemorrhoids [None]
  - Hyperuricaemia [None]
  - Haemophilus test positive [None]
  - Dialysis [None]
